FAERS Safety Report 5565585-0 (Version None)
Quarter: 2007Q4

REPORT INFORMATION
  Report Type: 
  Country: None (occurrence: None)
  Receive Date: 20071218
  Receipt Date: 20071206
  Transmission Date: 20080405
  Serious: Yes (Hospitalization)
  Sender: FDA-Public Use
  Company Number: JP-PFIZER INC-2007104873

PATIENT
  Sex: Male

DRUGS (1)
  1. GENOTROPIN [Suspect]
     Indication: PRADER-WILLI SYNDROME
     Dosage: DAILY DOSE:.3MG
     Route: 058

REACTIONS (3)
  - CONDITION AGGRAVATED [None]
  - OSTEOMYELITIS [None]
  - SCOLIOSIS [None]
